FAERS Safety Report 9296264 (Version 1)
Quarter: 2013Q2

REPORT INFORMATION
  Report Type: Spontaneous
  Country: BR (occurrence: BR)
  Receive Date: 20130517
  Receipt Date: 20130517
  Transmission Date: 20140414
  Serious: Yes (Other)
  Sender: FDA-Public Use
  Company Number: BR-ABBOTT-13X-020-1088516-00

PATIENT
  Age: 37 Year
  Sex: Male
  Weight: 55 kg

DRUGS (8)
  1. DEPAKENE [Suspect]
     Indication: CONVULSION
     Dosage: 1 TABLET IN THE MORNING/1 AT NIGHT
     Route: 048
  2. GARDENAL [Concomitant]
     Indication: CONVULSION
     Route: 048
     Dates: start: 1996
  3. SULFAMETHOXAZOLE AND TRIMETHOPRIM [Concomitant]
     Indication: MENTAL IMPAIRMENT
     Dosage: 1 TABLET BEFORE SLEEP
     Route: 048
  4. HIDANTAL [Concomitant]
     Indication: CONVULSION
     Route: 048
  5. CAPTOPRIL [Concomitant]
     Indication: BLOOD PRESSURE MANAGEMENT
     Route: 048
  6. DICLOFENAC [Concomitant]
     Indication: PAIN
     Dosage: 2 OR 3 TABLETS WHEN NEEDED
     Route: 048
  7. ^SERFALESTILINA^ (?) [Concomitant]
     Indication: PAIN
     Dosage: 2 OR 3 TABLETS WHEN NEEDED
     Route: 048
  8. UNKNOWN DRUGS [Concomitant]
     Indication: TENDONITIS

REACTIONS (36)
  - Jaw fracture [Recovered/Resolved]
  - Tongue injury [Recovered/Resolved]
  - Loss of consciousness [Recovered/Resolved]
  - Convulsion [Unknown]
  - Headache [Not Recovered/Not Resolved]
  - Influenza [Not Recovered/Not Resolved]
  - Hypersensitivity [Not Recovered/Not Resolved]
  - Visual acuity reduced [Not Recovered/Not Resolved]
  - Hangover [Not Recovered/Not Resolved]
  - Chest pain [Not Recovered/Not Resolved]
  - Dyspnoea [Not Recovered/Not Resolved]
  - Dyspepsia [Not Recovered/Not Resolved]
  - Reading disorder [Unknown]
  - Headache [Unknown]
  - Unevaluable event [Unknown]
  - Unevaluable event [Unknown]
  - Somnolence [Unknown]
  - Insomnia [Unknown]
  - Unevaluable event [Unknown]
  - Hyperhidrosis [Unknown]
  - Fall [Unknown]
  - Laceration [Unknown]
  - Laceration [Unknown]
  - Fall [Unknown]
  - Unevaluable event [Unknown]
  - Feeling drunk [Unknown]
  - Pain in extremity [Unknown]
  - Pain in extremity [Unknown]
  - Memory impairment [Unknown]
  - Feeling abnormal [Unknown]
  - Sneezing [Unknown]
  - Memory impairment [Unknown]
  - Loss of consciousness [Unknown]
  - Renal colic [Unknown]
  - Unevaluable event [Unknown]
  - Loss of consciousness [Unknown]
